FAERS Safety Report 5970586-4 (Version None)
Quarter: 2008Q4

REPORT INFORMATION
  Report Type: 
  Country: None (occurrence: None)
  Receive Date: 20081126
  Receipt Date: 20081031
  Transmission Date: 20090506
  Serious: No
  Sender: FDA-Public Use
  Company Number: US-ABBOTT-08P-163-0485174-00

PATIENT
  Sex: Male

DRUGS (15)
  1. SIMCOR [Suspect]
     Indication: CORONARY ARTERY DISEASE
     Dates: start: 20081017
  2. SIMCOR [Suspect]
     Indication: BLOOD CHOLESTEROL
  3. CLOPIDOGREL [Concomitant]
     Indication: CORONARY ARTERIAL STENT INSERTION
  4. LOSARTAN POTASSIUM [Concomitant]
     Indication: HYPERTENSION
  5. ESOMEPRAZOLE MAGNESIUM [Concomitant]
     Indication: GASTROOESOPHAGEAL REFLUX DISEASE
  6. INSULIN GLARGINE [Concomitant]
     Indication: DIABETES MELLITUS
     Route: 058
  7. INDEROL [Concomitant]
     Indication: TREMOR
  8. PRIMIDONE [Concomitant]
     Indication: TREMOR
  9. ASPIRIN [Concomitant]
     Indication: DRUG USE FOR UNKNOWN INDICATION
  10. ALPRAZOLAM [Concomitant]
     Indication: DRUG USE FOR UNKNOWN INDICATION
  11. GLYBURIDE [Concomitant]
     Indication: DIABETES MELLITUS
  12. ROSIGLITAZONE [Concomitant]
     Indication: DIABETES MELLITUS
  13. ISOSORBIDE [Concomitant]
     Indication: MYOCARDIAL INFARCTION
  14. PREGABALIN [Concomitant]
     Indication: NEUROPATHY PERIPHERAL
  15. FENOFIBRATE [Concomitant]
     Indication: DRUG USE FOR UNKNOWN INDICATION

REACTIONS (3)
  - FLUSHING [None]
  - HEADACHE [None]
  - PRURITUS [None]
